FAERS Safety Report 5901939-8 (Version None)
Quarter: 2008Q3

REPORT INFORMATION
  Report Type: 
  Country: None (occurrence: None)
  Receive Date: 20080929
  Receipt Date: 20080329
  Transmission Date: 20090109
  Serious: No
  Sender: FDA-Public Use
  Company Number: US-BRISTOL-MYERS SQUIBB COMPANY-14135388

PATIENT

DRUGS (1)
  1. BUSPAR [Suspect]

REACTIONS (1)
  - DRUG INEFFECTIVE [None]
